FAERS Safety Report 14879885 (Version 1)
Quarter: 2018Q2

REPORT INFORMATION
  Report Type: Report from Study
  Country: AR (occurrence: AR)
  Receive Date: 20180511
  Receipt Date: 20180511
  Transmission Date: 20180711
  Serious: Yes (Other)
  Sender: FDA-Public Use
  Company Number: PHHY2017AR182289

PATIENT
  Age: 76 Year
  Sex: Male

DRUGS (2)
  1. TAFINLAR [Suspect]
     Active Substance: DABRAFENIB MESYLATE
     Dosage: 300 MG, QD
     Route: 065
     Dates: start: 201703, end: 201703
  2. TAFINLAR [Suspect]
     Active Substance: DABRAFENIB MESYLATE
     Indication: METASTATIC MALIGNANT MELANOMA
     Dosage: 300 MG, QD
     Route: 065
     Dates: start: 20170201

REACTIONS (8)
  - Toxicity to various agents [Recovered/Resolved]
  - Red blood cell count decreased [Recovered/Resolved]
  - Pain [Recovered/Resolved]
  - Malaise [Recovered/Resolved]
  - Anaemia [Recovered/Resolved]
  - Haematocrit decreased [Unknown]
  - Feeling abnormal [Recovered/Resolved]
  - Weight decreased [Recovered/Resolved]

NARRATIVE: CASE EVENT DATE: 20171128
